FAERS Safety Report 4402321-5 (Version None)
Quarter: 2004Q3

REPORT INFORMATION
  Report Type: 
  Country: None (occurrence: None)
  Receive Date: 20040714
  Receipt Date: 20040628
  Transmission Date: 20050211
  Serious: Yes (Hospitalization)
  Sender: FDA-Public Use
  Company Number: 701893

PATIENT
  Age: 42 Year
  Sex: Male
  Weight: 104.3273 kg

DRUGS (2)
  1. AMEVIVE [Suspect]
     Indication: PSORIASIS
     Dosage: 15 MG QW IM
     Route: 030
     Dates: start: 20040323, end: 20040406
  2. SORIATANE [Concomitant]

REACTIONS (22)
  - ACUTE RESPIRATORY FAILURE [None]
  - ANAEMIA [None]
  - ATELECTASIS [None]
  - BLOOD CHOLESTEROL INCREASED [None]
  - BLOOD TRIGLYCERIDES INCREASED [None]
  - CATHETER RELATED COMPLICATION [None]
  - CD4 LYMPHOCYTES INCREASED [None]
  - DEEP VEIN THROMBOSIS [None]
  - DIALYSIS [None]
  - DISSEMINATED INTRAVASCULAR COAGULATION [None]
  - GENERAL PHYSICAL HEALTH DETERIORATION [None]
  - HAND AMPUTATION [None]
  - HYPERPHOSPHATAEMIA [None]
  - HYPOCALCAEMIA [None]
  - HYPOTENSION [None]
  - LEG AMPUTATION [None]
  - METABOLIC ACIDOSIS [None]
  - PERIPHERAL ISCHAEMIA [None]
  - RENAL FAILURE ACUTE [None]
  - SEPSIS [None]
  - SURGICAL PROCEDURE REPEATED [None]
  - VENOUS OCCLUSION [None]
